FAERS Safety Report 23455902 (Version 1)
Quarter: 2024Q1

REPORT INFORMATION
  Report Type: Spontaneous
  Country: US (occurrence: None)
  Receive Date: 20240129
  Receipt Date: 20240129
  Transmission Date: 20240409
  Serious: Yes (unspecified)
  Sender: FDA-Public Use
  Company Number: None

PATIENT
  Age: 20 Year
  Sex: Male

DRUGS (1)
  1. SINGULAIR [Suspect]
     Active Substance: MONTELUKAST SODIUM
     Indication: Asthma
     Dates: start: 20000208, end: 20170208

REACTIONS (3)
  - Schizophrenia [None]
  - Binge drinking [None]
  - Hallucination, auditory [None]

NARRATIVE: CASE EVENT DATE: 20170201
